FAERS Safety Report 6680364-9 (Version None)
Quarter: 2010Q2

REPORT INFORMATION
  Report Type: 
  Country: None (occurrence: None)
  Receive Date: 20100412
  Receipt Date: 20100405
  Transmission Date: 20101027
  Serious: Yes (Death, Life-Threatening, Hospitalization)
  Sender: FDA-Public Use
  Company Number: ABWAW-10-0027

PATIENT
  Age: 65 Year
  Sex: Male
  Weight: 79.8 kg

DRUGS (1)
  1. ABRAXANE [Suspect]
     Indication: DRUG USE FOR UNKNOWN INDICATION
     Dosage: 533 MG
     Dates: start: 20100111, end: 20100121

REACTIONS (2)
  - ACUTE PULMONARY OEDEMA [None]
  - TACHYPNOEA [None]
